FAERS Safety Report 22384619 (Version 2)
Quarter: 2023Q2

REPORT INFORMATION
  Report Type: Report from Study
  Country: US (occurrence: US)
  Receive Date: 20230530
  Receipt Date: 20230607
  Transmission Date: 20230721
  Serious: Yes (Other)
  Sender: FDA-Public Use
  Company Number: US-JNJFOC-20230561934

PATIENT
  Age: 34 Year
  Sex: Female
  Weight: 76.7 kg

DRUGS (5)
  1. MACITENTAN [Suspect]
     Active Substance: MACITENTAN
     Indication: Heritable pulmonary arterial hypertension
     Route: 048
     Dates: start: 20221117
  2. SPIRONOLACTONE [Concomitant]
     Active Substance: SPIRONOLACTONE
     Indication: Heritable pulmonary arterial hypertension
     Route: 048
     Dates: start: 20180701
  3. UPTRAVI [Concomitant]
     Active Substance: SELEXIPAG
     Indication: Heritable pulmonary arterial hypertension
     Route: 048
     Dates: start: 20180801
  4. UPTRAVI [Concomitant]
     Active Substance: SELEXIPAG
     Route: 048
     Dates: start: 20180801
  5. ADEMPAS [Concomitant]
     Active Substance: RIOCIGUAT
     Indication: Heritable pulmonary arterial hypertension
     Route: 048
     Dates: start: 20200501

REACTIONS (1)
  - Syncope [Recovered/Resolved]

NARRATIVE: CASE EVENT DATE: 20230428
